FAERS Safety Report 6699544-1 (Version None)
Quarter: 2010Q2

REPORT INFORMATION
  Report Type: 
  Country: None (occurrence: None)
  Receive Date: 20100427
  Receipt Date: 20100427
  Transmission Date: 20101027
  Serious: Yes (Hospitalization, Disabling)
  Sender: FDA-Public Use
  Company Number: None

PATIENT
  Age: 56 Year
  Sex: Male
  Weight: 94.3482 kg

DRUGS (4)
  1. TERAZOSIN HCL [Suspect]
     Indication: BENIGN PROSTATIC HYPERPLASIA
     Dosage: 5MG DAILY -QPM- PO
     Route: 048
     Dates: start: 20100403, end: 20100403
  2. TERAZOSIN HCL [Suspect]
     Indication: HYPERTENSION
     Dosage: 5MG DAILY -QPM- PO
     Route: 048
     Dates: start: 20100403, end: 20100403
  3. DOXAZOSIN 4MG [Suspect]
     Indication: BENIGN PROSTATIC HYPERPLASIA
     Dosage: 4MG DAILY -PQM- PO
     Route: 048
     Dates: start: 20100101, end: 20100320
  4. DOXAZOSIN 4MG [Suspect]
     Indication: HYPERTENSION
     Dosage: 4MG DAILY -PQM- PO
     Route: 048
     Dates: start: 20100101, end: 20100320

REACTIONS (7)
  - BLOOD PRESSURE INCREASED [None]
  - CAROTID ARTERY OCCLUSION [None]
  - FACIAL PALSY [None]
  - HYPOTENSION [None]
  - TRANSIENT ISCHAEMIC ATTACK [None]
  - TREATMENT NONCOMPLIANCE [None]
  - UNRESPONSIVE TO STIMULI [None]
